FAERS Safety Report 17277450 (Version 2)
Quarter: 2020Q1

REPORT INFORMATION
  Report Type: Spontaneous
  Country: US (occurrence: US)
  Receive Date: 20200116
  Receipt Date: 20200122
  Transmission Date: 20200409
  Serious: Yes (Hospitalization, Other)
  Sender: FDA-Public Use
  Company Number: US-GLAXOSMITHKLINE-CN2020GSK004467

PATIENT
  Sex: Female

DRUGS (2)
  1. BUPROPION HYDROCHLORIDE XL [Suspect]
     Active Substance: BUPROPION HYDROCHLORIDE
     Indication: DEPRESSION
     Dosage: 150 MG, 1D
  2. SERTRALINE [Suspect]
     Active Substance: SERTRALINE HYDROCHLORIDE
     Indication: DEPRESSION
     Dosage: 20 MG

REACTIONS (16)
  - Pneumonia [Unknown]
  - Overdose [Unknown]
  - Generalised tonic-clonic seizure [Recovered/Resolved]
  - Hypotension [Recovered/Resolved]
  - Electrocardiogram QRS complex prolonged [Recovered/Resolved]
  - Hypoxia [Recovered/Resolved]
  - Encephalopathy [Recovered/Resolved]
  - Sinus tachycardia [Recovered/Resolved]
  - Cardiogenic shock [Recovered/Resolved]
  - Toxicity to various agents [Unknown]
  - Ejection fraction decreased [Recovered/Resolved]
  - Mental status changes [Recovered/Resolved]
  - Ventricular extrasystoles [Recovered/Resolved]
  - Abdominal distension [Recovered/Resolved]
  - Gastrointestinal hypomotility [Recovered/Resolved]
  - Electrocardiogram QT prolonged [Recovered/Resolved]
